FAERS Safety Report 14612132 (Version 3)
Quarter: 2019Q3

REPORT INFORMATION
  Report Type: Spontaneous
  Country: US (occurrence: US)
  Receive Date: 20180308
  Receipt Date: 20190809
  Transmission Date: 20191004
  Serious: Yes (Death, Other)
  Sender: FDA-Public Use
  Company Number: US-ASTRAZENECA-2018SE27842

PATIENT
  Age: 26708 Day
  Sex: Male
  Weight: 77.1 kg

DRUGS (57)
  1. NEXIUM [Suspect]
     Active Substance: ESOMEPRAZOLE MAGNESIUM
     Indication: DYSPEPSIA
     Route: 048
     Dates: start: 2005, end: 2008
  2. LANSOPRAZOLE. [Suspect]
     Active Substance: LANSOPRAZOLE
     Indication: DYSPEPSIA
     Route: 065
     Dates: start: 2013, end: 2016
  3. LANTUS [Concomitant]
     Active Substance: INSULIN GLARGINE
     Indication: DIABETES MELLITUS
     Route: 065
     Dates: start: 2011, end: 2016
  4. COZAAR [Concomitant]
     Active Substance: LOSARTAN POTASSIUM
     Indication: HYPERTENSION
     Route: 065
     Dates: start: 2000, end: 2016
  5. AMLODIPINE [Concomitant]
     Active Substance: AMLODIPINE BESYLATE
     Indication: HYPERTENSION
     Route: 065
     Dates: start: 2008, end: 2012
  6. VITAMIN E [Concomitant]
     Active Substance: .ALPHA.-TOCOPHEROL
     Route: 065
     Dates: start: 2007, end: 2012
  7. CENTRUM SILVER [Concomitant]
     Active Substance: MINERALS\VITAMINS
     Route: 065
     Dates: start: 2007, end: 2012
  8. RANITIDINE. [Concomitant]
     Active Substance: RANITIDINE
  9. ZANTAC [Concomitant]
     Active Substance: RANITIDINE HYDROCHLORIDE
     Route: 065
  10. JANUVIA [Concomitant]
     Active Substance: SITAGLIPTIN PHOSPHATE
     Route: 048
     Dates: start: 20080105
  11. PREDNISOLONE. [Concomitant]
     Active Substance: PREDNISOLONE
     Route: 065
     Dates: start: 20120619
  12. ALLOPURINOL. [Concomitant]
     Active Substance: ALLOPURINOL
     Dates: start: 20170321
  13. PRILOSEC [Suspect]
     Active Substance: OMEPRAZOLE MAGNESIUM
     Indication: DYSPEPSIA
     Route: 048
     Dates: start: 20010915
  14. LANTUS [Concomitant]
     Active Substance: INSULIN GLARGINE
     Indication: DIABETES MELLITUS
     Dosage: 100 UNIT
     Route: 065
     Dates: start: 20081121
  15. TRICOR [Concomitant]
     Active Substance: FENOFIBRATE
     Route: 048
     Dates: start: 20080112
  16. LOSARTAN POTASSIUM. [Concomitant]
     Active Substance: LOSARTAN POTASSIUM
     Route: 048
     Dates: start: 20120529
  17. BUMETANIDE. [Concomitant]
     Active Substance: BUMETANIDE
     Dates: start: 20180219
  18. NEXIUM [Suspect]
     Active Substance: ESOMEPRAZOLE MAGNESIUM
     Indication: DYSPEPSIA
     Dosage: GENERIC
     Route: 065
  19. PRILOSEC [Suspect]
     Active Substance: OMEPRAZOLE MAGNESIUM
     Indication: DYSPEPSIA
     Route: 048
     Dates: start: 2001, end: 2005
  20. SIMVASTATIN. [Concomitant]
     Active Substance: SIMVASTATIN
     Indication: BLOOD CHOLESTEROL INCREASED
     Route: 065
     Dates: start: 2008, end: 2012
  21. GLUCOPHAGE [Concomitant]
     Active Substance: METFORMIN HYDROCHLORIDE
     Indication: DIABETES MELLITUS
     Route: 065
     Dates: start: 2008, end: 2012
  22. ROBITUSSIN (GUAIFENESIN) [Concomitant]
     Active Substance: GUAIFENESIN
     Indication: COUGH
     Route: 065
     Dates: start: 2002
  23. NIASPAN [Concomitant]
     Active Substance: NIACIN
     Route: 048
     Dates: start: 20081226
  24. FLUVIRIN NOS [Concomitant]
     Active Substance: INFLUENZA VIRUS VACCINE
     Route: 065
     Dates: start: 20100608
  25. PENICILLIN [Concomitant]
     Active Substance: PENICILLIN
     Route: 048
     Dates: start: 20100608
  26. METOLAZONE. [Concomitant]
     Active Substance: METOLAZONE
     Route: 048
     Dates: start: 20120428
  27. MULTIVITAMIN [Concomitant]
     Active Substance: VITAMINS
     Dosage: DAILY
     Route: 048
     Dates: start: 20120515
  28. CEPHALEXIN. [Concomitant]
     Active Substance: CEPHALEXIN
     Dates: start: 20180711
  29. PANTOPRAZOLE [Suspect]
     Active Substance: PANTOPRAZOLE
     Indication: DYSPEPSIA
     Dosage: 20 MG
     Route: 065
     Dates: start: 2014
  30. FUROSEMIDE. [Concomitant]
     Active Substance: FUROSEMIDE
     Indication: FLUID RETENTION
     Route: 065
     Dates: start: 2002, end: 2011
  31. TORSEMIDE. [Concomitant]
     Active Substance: TORSEMIDE
     Indication: FLUID RETENTION
     Route: 065
     Dates: start: 2008, end: 2012
  32. STOOL SOFTENER (DOCUSATE) [Concomitant]
     Active Substance: DOCUSATE
     Indication: CONSTIPATION
     Route: 065
     Dates: start: 2011
  33. ACETAMINOPHEN. [Concomitant]
     Active Substance: ACETAMINOPHEN
     Route: 065
     Dates: start: 20100608
  34. ASPIRIN. [Concomitant]
     Active Substance: ASPIRIN
     Route: 065
     Dates: start: 20151210
  35. PRILOSEC [Suspect]
     Active Substance: OMEPRAZOLE MAGNESIUM
     Indication: DYSPEPSIA
     Dosage: GENERIC
     Route: 065
     Dates: start: 2005, end: 2006
  36. LOSARTAN. [Concomitant]
     Active Substance: LOSARTAN
     Indication: HYPERTENSION
     Route: 065
     Dates: start: 2011, end: 2016
  37. GLYBURIDE. [Concomitant]
     Active Substance: GLYBURIDE
     Route: 048
     Dates: start: 20081226
  38. ANDROGEL [Concomitant]
     Active Substance: TESTOSTERONE
     Route: 065
     Dates: start: 20090320
  39. LIDOCAINE. [Concomitant]
     Active Substance: LIDOCAINE
     Route: 065
     Dates: start: 20110523
  40. METRONIDAZOLE. [Concomitant]
     Active Substance: METRONIDAZOLE
  41. AUGMENTIN [Concomitant]
     Active Substance: AMOXICILLIN\CLAVULANATE POTASSIUM
     Indication: INFECTION
     Route: 065
     Dates: start: 2001, end: 2016
  42. LOPRESSOR [Concomitant]
     Active Substance: METOPROLOL TARTRATE
     Indication: HYPERTENSION
     Route: 065
     Dates: start: 2000, end: 2016
  43. VITAMIN C [Concomitant]
     Active Substance: ASCORBIC ACID
     Route: 065
     Dates: start: 2007, end: 2012
  44. TYLENOL [Concomitant]
     Active Substance: ACETAMINOPHEN
     Indication: PAIN
     Route: 065
     Dates: start: 2002, end: 2006
  45. HUMALOG [Concomitant]
     Active Substance: INSULIN LISPRO
     Route: 048
     Dates: start: 20090129
  46. HYDROCORT- PRAMOXINE [Concomitant]
     Route: 065
     Dates: start: 20090320
  47. CARVEDILOL. [Concomitant]
     Active Substance: CARVEDILOL
     Dates: start: 20180606
  48. LIPITOR [Concomitant]
     Active Substance: ATORVASTATIN CALCIUM
     Indication: BLOOD CHOLESTEROL INCREASED
     Route: 065
     Dates: start: 2001, end: 2016
  49. LEVAQUIN [Concomitant]
     Active Substance: LEVOFLOXACIN
     Indication: INFECTION
     Route: 065
     Dates: start: 2008, end: 2012
  50. ALPRAZOLAM. [Concomitant]
     Active Substance: ALPRAZOLAM
     Dates: start: 20171110
  51. NEXIUM [Suspect]
     Active Substance: ESOMEPRAZOLE MAGNESIUM
     Indication: DYSPEPSIA
     Route: 048
     Dates: start: 2001, end: 2016
  52. NEXIUM [Suspect]
     Active Substance: ESOMEPRAZOLE MAGNESIUM
     Indication: DYSPEPSIA
     Route: 048
     Dates: start: 20081128
  53. PRILOSEC [Suspect]
     Active Substance: OMEPRAZOLE MAGNESIUM
     Indication: DYSPEPSIA
     Route: 048
     Dates: start: 2001, end: 2016
  54. LANSOPRAZOLE. [Suspect]
     Active Substance: LANSOPRAZOLE
     Indication: DYSPEPSIA
     Route: 048
     Dates: start: 20130117
  55. METOPROLOL. [Concomitant]
     Active Substance: METOPROLOL
     Indication: HYPERTENSION
     Route: 065
     Dates: start: 2000, end: 2016
  56. SPIRONOLACTONE. [Concomitant]
     Active Substance: SPIRONOLACTONE
     Dates: start: 20170411
  57. TEMAZEPAM. [Concomitant]
     Active Substance: TEMAZEPAM
     Dates: start: 20180711

REACTIONS (3)
  - Acute kidney injury [Not Recovered/Not Resolved]
  - Chronic kidney disease [Not Recovered/Not Resolved]
  - Renal failure [Unknown]

NARRATIVE: CASE EVENT DATE: 20141209
